FAERS Safety Report 5158085-3 (Version None)
Quarter: 2006Q4

REPORT INFORMATION
  Report Type: 
  Country: None (occurrence: None)
  Receive Date: 20061113
  Receipt Date: 20061107
  Transmission Date: 20070319
  Serious: Yes (Death)
  Sender: FDA-Public Use
  Company Number: 200610277BBE

PATIENT
  Sex: Male

DRUGS (1)
  1. GAMIMUNE N 5% [Suspect]

REACTIONS (3)
  - BRONCHIAL DISORDER [None]
  - ILL-DEFINED DISORDER [None]
  - MULTI-ORGAN FAILURE [None]
